FAERS Safety Report 21651149 (Version 1)
Quarter: 2022Q4

REPORT INFORMATION
  Report Type: Spontaneous
  Country: AU (occurrence: AU)
  Receive Date: 20221128
  Receipt Date: 20221128
  Transmission Date: 20230113
  Serious: Yes (Hospitalization)
  Sender: FDA-Public Use
  Company Number: AU-EXELA PHARMA SCIENCES, LLC-2022EXL00035

PATIENT
  Age: 63 Year
  Sex: Male

DRUGS (2)
  1. SODIUM BICARBONATE [Suspect]
     Active Substance: SODIUM BICARBONATE
     Indication: Abdominal pain upper
     Route: 048
  2. ESOMEPRAZOLE [Concomitant]
     Active Substance: ESOMEPRAZOLE
     Indication: Abdominal pain upper
     Dosage: 20 MG
     Route: 065

REACTIONS (6)
  - Pneumoperitoneum [Recovered/Resolved]
  - Gastric disorder [Recovered/Resolved]
  - Flatulence [Recovered/Resolved]
  - Tenderness [Recovered/Resolved]
  - Abdominal pain upper [Recovered/Resolved]
  - Hyperhidrosis [Recovered/Resolved]
